FAERS Safety Report 13179858 (Version 3)
Quarter: 2017Q3

REPORT INFORMATION
  Report Type: Spontaneous
  Country: CA (occurrence: CA)
  Receive Date: 20170202
  Receipt Date: 20170919
  Transmission Date: 20171127
  Serious: Yes (Other)
  Sender: FDA-Public Use
  Company Number: CA-PFIZER INC-2017037953

PATIENT
  Age: 76 Year
  Sex: Female

DRUGS (2)
  1. GOLD [Suspect]
     Active Substance: GOLD
     Dosage: UNK
  2. METHOTREXATE SODIUM. [Suspect]
     Active Substance: METHOTREXATE SODIUM
     Indication: RHEUMATOID ARTHRITIS
     Dosage: UNK

REACTIONS (2)
  - Drug intolerance [Unknown]
  - Gastrointestinal disorder [Unknown]
